FAERS Safety Report 20021241 (Version 1)
Quarter: 2021Q4

REPORT INFORMATION
  Report Type: Spontaneous
  Country: DE (occurrence: None)
  Receive Date: 20211101
  Receipt Date: 20211101
  Transmission Date: 20220303
  Serious: Yes (Other)
  Sender: FDA-Public Use
  Company Number: DE-ROCHE-2944452

PATIENT

DRUGS (6)
  1. ATEZOLIZUMAB [Suspect]
     Active Substance: ATEZOLIZUMAB
     Indication: Small cell lung cancer
     Dosage: 5 TIMES IN COMBINATION WITH CARBOPLATIN AND ETOPOSIDE STARTING FROM THE SECOND CYCLE
     Route: 065
     Dates: end: 202005
  2. ATEZOLIZUMAB [Suspect]
     Active Substance: ATEZOLIZUMAB
     Indication: Metastases to liver
     Dosage: MAINTENANCE THERAPY
     Route: 065
     Dates: start: 202006
  3. ETOPOSIDE [Suspect]
     Active Substance: ETOPOSIDE
     Indication: Small cell lung cancer
     Dosage: 6 TIMES IN COMBINATION WITH CARBOPLATIN, SINCE THE SECOND CYCLE ADDITIONALLY WITH?ATEZOLIZUMAB
     Route: 065
     Dates: start: 201912, end: 202005
  4. ETOPOSIDE [Suspect]
     Active Substance: ETOPOSIDE
     Indication: Metastases to liver
  5. CARBOPLATIN [Suspect]
     Active Substance: CARBOPLATIN
     Indication: Small cell lung cancer
     Dosage: 6 TIMES IN COMBINATION WITH ETOPOSIDE, SINCE THE SECOND CYCLE ADDITIONALLY WITH?ATEZOLIZUMAB
     Route: 065
     Dates: start: 201912, end: 202005
  6. CARBOPLATIN [Suspect]
     Active Substance: CARBOPLATIN
     Indication: Metastases to liver

REACTIONS (1)
  - Pulmonary embolism [Unknown]

NARRATIVE: CASE EVENT DATE: 20200801
